FAERS Safety Report 13621437 (Version 1)
Quarter: 2017Q2

REPORT INFORMATION
  Report Type: Report from Study
  Country: US (occurrence: US)
  Receive Date: 20170607
  Receipt Date: 20170607
  Transmission Date: 20170830
  Serious: Yes (Hospitalization)
  Sender: FDA-Public Use
  Company Number: US-VIFOR (INTERNATIONAL) INC.-VIT-2017-06328

PATIENT
  Sex: Male

DRUGS (11)
  1. VELTASSA [Suspect]
     Active Substance: PATIROMER
     Indication: HYPERKALAEMIA
     Route: 048
     Dates: start: 20160226
  2. GLIMEPIRIDE. [Concomitant]
     Active Substance: GLIMEPIRIDE
  3. CALCITRIOL. [Concomitant]
     Active Substance: CALCITRIOL
  4. NIFEDIPINE. [Concomitant]
     Active Substance: NIFEDIPINE
  5. OMEPRAZOLE. [Concomitant]
     Active Substance: OMEPRAZOLE
  6. IRBESARTAN. [Concomitant]
     Active Substance: IRBESARTAN
  7. CILOSTAZOL. [Concomitant]
     Active Substance: CILOSTAZOL
  8. TYLENOL [Concomitant]
     Active Substance: ACETAMINOPHEN
  9. LISINOPRIL. [Concomitant]
     Active Substance: LISINOPRIL
  10. CRESTOR [Concomitant]
     Active Substance: ROSUVASTATIN CALCIUM
  11. FUROSEMIDE. [Concomitant]
     Active Substance: FUROSEMIDE

REACTIONS (1)
  - Hospitalisation [Unknown]
